FAERS Safety Report 7862594-3 (Version None)
Quarter: 2011Q4

REPORT INFORMATION
  Report Type: 
  Country: None (occurrence: None)
  Receive Date: 20111027
  Receipt Date: 20101109
  Transmission Date: 20120403
  Serious: No
  Sender: FDA-Public Use
  Company Number: US-AMGEN-US030501

PATIENT
  Age: 50 Year
  Sex: Female
  Weight: 104.4 kg

DRUGS (13)
  1. PROPRANOLOL HCL [Concomitant]
     Dosage: 10 MG, UNK
     Dates: start: 19970301
  2. ENBREL [Suspect]
     Indication: RHEUMATOID ARTHRITIS
     Dosage: 25 MG, 2 TIMES/WK
     Route: 058
     Dates: start: 20000701
  3. ORCIPRENALINE SULFATE [Concomitant]
     Dosage: 2 UNK, UNK
     Dates: start: 19990101
  4. POTASSIUM CHLORIDE [Concomitant]
     Dosage: 20 MEQ, UNK
  5. ALBUTEROL SULFATE [Concomitant]
     Dosage: UNK UNK, UNK
     Dates: start: 19990101
  6. KETOPROFEN [Concomitant]
     Dosage: 200 MG, UNK
     Dates: start: 19930101
  7. FLUTICASONE PROPIONATE [Concomitant]
     Dosage: 44 A?G, UNK
     Dates: start: 20000101
  8. PAROXETINE HCL [Concomitant]
     Dosage: UNK UNK, UNK
     Dates: start: 20030122
  9. ENBREL [Suspect]
     Dosage: 50 MG, QWK
     Route: 058
     Dates: start: 20101001
  10. FUROSEMIDE [Concomitant]
     Dosage: 40 MG, UNK
     Dates: start: 19970201
  11. HYDROXYCHLOROQUINE SULFATE [Concomitant]
     Dosage: 200 MG, UNK
     Dates: start: 19970501
  12. PREMARIN WITH METHYLTESTOSTERONE [Concomitant]
     Dosage: UNK UNK, UNK
     Dates: start: 20000301
  13. PREDNISONE [Concomitant]
     Dosage: 5 MG, UNK
     Dates: start: 20010801

REACTIONS (10)
  - OEDEMA PERIPHERAL [None]
  - NECK PAIN [None]
  - NASOPHARYNGITIS [None]
  - INJECTION SITE PAIN [None]
  - HAND DEFORMITY [None]
  - MUSCULOSKELETAL STIFFNESS [None]
  - FOOT DEFORMITY [None]
  - MUSCULAR WEAKNESS [None]
  - NODULE [None]
  - BACK PAIN [None]
